FAERS Safety Report 5858512-X (Version None)
Quarter: 2008Q3

REPORT INFORMATION
  Report Type: 
  Country: None (occurrence: None)
  Receive Date: 20080826
  Receipt Date: 20080820
  Transmission Date: 20090109
  Serious: Yes (Other)
  Sender: FDA-Public Use
  Company Number: US-PFIZER INC-2008059993

PATIENT
  Sex: Female
  Weight: 65.909 kg

DRUGS (2)
  1. LIPITOR [Suspect]
     Indication: BLOOD CHOLESTEROL INCREASED
  2. ANTIHYPERTENSIVES [Concomitant]

REACTIONS (7)
  - CONTUSION [None]
  - DIABETES MELLITUS [None]
  - FALL [None]
  - HIP ARTHROPLASTY [None]
  - IMPLANTABLE DEFIBRILLATOR INSERTION [None]
  - KNEE ARTHROPLASTY [None]
  - PAIN IN EXTREMITY [None]
